FAERS Safety Report 12708564 (Version 1)
Quarter: 2016Q3

REPORT INFORMATION
  Report Type: Spontaneous
  Country: None (occurrence: US)
  Receive Date: 20160901
  Receipt Date: 20160901
  Transmission Date: 20161109
  Serious: No
  Sender: FDA-Public Use
  Company Number: US-ENDO PHARMACEUTICALS INC.-2016-001782

PATIENT
  Age: 71 Year
  Sex: Female
  Weight: 36.32 kg

DRUGS (5)
  1. XANAX [Concomitant]
     Active Substance: ALPRAZOLAM
     Indication: ANXIETY
  2. THEOPHYLLINE ER [Concomitant]
     Active Substance: THEOPHYLLINE ANHYDROUS
     Indication: PRODUCTIVE COUGH
  3. THEO-24 [Suspect]
     Active Substance: THEOPHYLLINE ANHYDROUS
     Indication: DYSPNOEA
  4. THEOPHYLLINE ER [Concomitant]
     Active Substance: THEOPHYLLINE ANHYDROUS
     Indication: DYSPNOEA
  5. THEO-24 [Suspect]
     Active Substance: THEOPHYLLINE ANHYDROUS
     Indication: PRODUCTIVE COUGH
     Route: 048
     Dates: start: 20160204, end: 20160207

REACTIONS (3)
  - Migraine [Recovered/Resolved]
  - Dyspnoea [Recovered/Resolved]
  - Vomiting [Recovered/Resolved]

NARRATIVE: CASE EVENT DATE: 20160204
